FAERS Safety Report 22326755 (Version 2)
Quarter: 2025Q3

REPORT INFORMATION
  Report Type: Spontaneous
  Country: US (occurrence: US)
  Receive Date: 20230516
  Receipt Date: 20250703
  Transmission Date: 20251021
  Serious: No
  Sender: RADIUS PHARM
  Company Number: US-RADIUS HEALTH INC.-2022US004044

PATIENT
  Age: 73 Year
  Sex: Female
  Weight: 69.433 kg

DRUGS (5)
  1. TYMLOS [Suspect]
     Active Substance: ABALOPARATIDE
     Indication: Osteoporosis postmenopausal
     Route: 058
     Dates: start: 20220819
  2. TYLENOL [Concomitant]
     Active Substance: ACETAMINOPHEN
     Indication: Product used for unknown indication
     Route: 048
  3. VITAMIN D2 [Concomitant]
     Active Substance: ERGOCALCIFEROL
     Indication: Product used for unknown indication
     Route: 048
  4. VITAMINS NOS [Concomitant]
     Active Substance: VITAMINS
     Indication: Product used for unknown indication
     Route: 048
  5. CALCIUM [Concomitant]
     Active Substance: CALCIUM
     Indication: Product used for unknown indication
     Route: 048

REACTIONS (11)
  - Injection site haemorrhage [Recovering/Resolving]
  - Injection site erythema [Recovering/Resolving]
  - Injection site exfoliation [Recovering/Resolving]
  - Nausea [Not Recovered/Not Resolved]
  - Headache [Recovering/Resolving]
  - Injection site pain [Recovering/Resolving]
  - Skin weeping [Recovering/Resolving]
  - COVID-19 [Unknown]
  - Asthenia [Unknown]
  - Dysstasia [Unknown]
  - Intentional dose omission [Unknown]

NARRATIVE: CASE EVENT DATE: 20220819
